FAERS Safety Report 25940168 (Version 1)
Quarter: 2025Q4

REPORT INFORMATION
  Report Type: Spontaneous
  Country: US (occurrence: US)
  Receive Date: 20251020
  Receipt Date: 20251020
  Transmission Date: 20260117
  Serious: No
  Sender: LUPIN
  Company Number: US-LUPIN PHARMACEUTICALS INC.-2025-09316

PATIENT

DRUGS (1)
  1. ALBUTEROL SULFATE [Suspect]
     Active Substance: ALBUTEROL SULFATE
     Indication: Dyspnoea
     Dosage: 1 PUFF EVERY FOUR HOURS, PRN

REACTIONS (3)
  - Wrong technique in product usage process [Unknown]
  - Device delivery system issue [Unknown]
  - No adverse event [Unknown]
